FAERS Safety Report 17488501 (Version 1)
Quarter: 2020Q1

REPORT INFORMATION
  Report Type: Spontaneous
  Country: US (occurrence: US)
  Receive Date: 20200302
  Receipt Date: 20200302
  Transmission Date: 20200409
  Serious: Yes (Disabling)
  Sender: FDA-Public Use
  Company Number: None

PATIENT
  Age: 37 Year
  Sex: Male
  Weight: 77.4 kg

DRUGS (1)
  1. FINASTERIDE. [Suspect]
     Active Substance: FINASTERIDE
     Indication: PROSTATOMEGALY
     Dosage: ?          QUANTITY:30 TABLET(S);?
     Route: 048
     Dates: start: 20191117, end: 20191207

REACTIONS (5)
  - Anxiety [None]
  - Erectile dysfunction [None]
  - Taste disorder [None]
  - Palpitations [None]
  - Excessive masturbation [None]

NARRATIVE: CASE EVENT DATE: 20191224
